FAERS Safety Report 17046766 (Version 1)
Quarter: 2019Q4

REPORT INFORMATION
  Report Type: Report from Study
  Country: ES (occurrence: ES)
  Receive Date: 20191119
  Receipt Date: 20191119
  Transmission Date: 20200122
  Serious: Yes (Other)
  Sender: FDA-Public Use
  Company Number: ES-TEVA-2019-ES-1136894

PATIENT
  Age: 31 Year
  Sex: Female

DRUGS (6)
  1. TRYPTIZOL [Concomitant]
     Active Substance: AMITRIPTYLINE HYDROCHLORIDE
     Route: 048
     Dates: start: 20181116
  2. COPAXONE [Suspect]
     Active Substance: GLATIRAMER ACETATE
     Indication: RELAPSING-REMITTING MULTIPLE SCLEROSIS
     Route: 058
     Dates: start: 20151102
  3. SELEGILINE [Concomitant]
     Active Substance: SELEGILINE
     Route: 048
     Dates: start: 20171024
  4. RIZATRIPTAN. [Concomitant]
     Active Substance: RIZATRIPTAN
     Route: 048
     Dates: start: 20181016
  5. MODAFINILE [Concomitant]
     Route: 048
     Dates: start: 20161102, end: 20171024
  6. FERROUS SULFATE. [Concomitant]
     Active Substance: FERROUS SULFATE
     Route: 048
     Dates: start: 20160615, end: 20161102

REACTIONS (1)
  - Meniscus injury [Not Recovered/Not Resolved]

NARRATIVE: CASE EVENT DATE: 20171104
